FAERS Safety Report 11636221 (Version 1)
Quarter: 2015Q4

REPORT INFORMATION
  Report Type: Spontaneous
  Country: US (occurrence: US)
  Receive Date: 20151016
  Receipt Date: 20151016
  Transmission Date: 20160304
  Serious: Yes (Hospitalization)
  Sender: FDA-Public Use
  Company Number: US-SUN PHARMACEUTICAL INDUSTRIES LTD-2015US-104589

PATIENT
  Age: 69 Year
  Sex: Female

DRUGS (5)
  1. LISINOPRIL. [Suspect]
     Active Substance: LISINOPRIL
     Indication: ARTHRITIS INFECTIVE
  2. VANCOMYCIN HYDROCHLORIDE. [Suspect]
     Active Substance: VANCOMYCIN HYDROCHLORIDE
     Indication: ARTHRITIS INFECTIVE
     Dosage: UNK
     Route: 042
  3. LISINOPRIL. [Suspect]
     Active Substance: LISINOPRIL
     Indication: ARTHRITIS INFECTIVE
     Route: 042
  4. TOBRAMYCIN. [Suspect]
     Active Substance: TOBRAMYCIN
     Indication: ARTHRITIS INFECTIVE
     Dosage: UNK G, UNK
     Route: 042
  5. TOBRAMYCIN. [Suspect]
     Active Substance: TOBRAMYCIN
     Indication: ARTHRITIS INFECTIVE
     Dosage: UNK G, UNK
     Route: 042

REACTIONS (3)
  - Hypotension [Recovering/Resolving]
  - Acute kidney injury [Recovering/Resolving]
  - Drug level increased [Recovering/Resolving]
